FAERS Safety Report 21698914 (Version 2)
Quarter: 2023Q1

REPORT INFORMATION
  Report Type: Spontaneous
  Country: US (occurrence: US)
  Receive Date: 20221208
  Receipt Date: 20230103
  Transmission Date: 20230418
  Serious: No
  Sender: FDA-Public Use
  Company Number: US-PFIZER INC-202200985752

PATIENT
  Age: 7 Year
  Sex: Female
  Weight: 16.78 kg

DRUGS (1)
  1. GENOTROPIN [Suspect]
     Active Substance: SOMATROPIN
     Indication: Turner^s syndrome
     Dosage: 1.2 (UNITS NOT PROVIDED), TWICE DAY
     Dates: start: 2021

REACTIONS (4)
  - Wrong technique in device usage process [Recovered/Resolved]
  - Poor quality device used [Recovered/Resolved]
  - Product dose omission issue [Recovered/Resolved]
  - Device information output issue [Recovered/Resolved]

NARRATIVE: CASE EVENT DATE: 20220504
